FAERS Safety Report 17618459 (Version 1)
Quarter: 2020Q2

REPORT INFORMATION
  Report Type: Spontaneous
  Country: US (occurrence: US)
  Receive Date: 20200402
  Receipt Date: 20200402
  Transmission Date: 20200713
  Serious: No
  Sender: FDA-Public Use
  Company Number: US-ROCHE-2390324

PATIENT
  Sex: Male
  Weight: 72.64 kg

DRUGS (3)
  1. ERIVEDGE [Suspect]
     Active Substance: VISMODEGIB
     Indication: BASAL CELL CARCINOMA
     Dosage: ONGOING: YES
     Route: 048
     Dates: start: 20190320
  2. ASPIRIN [ACETYLSALICYLIC ACID] [Concomitant]
     Active Substance: ASPIRIN
     Route: 048
     Dates: start: 20190510
  3. ATENOLOL. [Concomitant]
     Active Substance: ATENOLOL
     Route: 048
     Dates: start: 20190319

REACTIONS (1)
  - Ageusia [Unknown]
